FAERS Safety Report 25200562 (Version 1)
Quarter: 2025Q2

REPORT INFORMATION
  Report Type: Spontaneous
  Country: IT (occurrence: IT)
  Receive Date: 20250415
  Receipt Date: 20250415
  Transmission Date: 20250716
  Serious: Yes (Hospitalization)
  Sender: MYLAN
  Company Number: None

PATIENT
  Age: 10 Year
  Sex: Male
  Weight: 35 kg

DRUGS (8)
  1. METHOTREXATE [Suspect]
     Active Substance: METHOTREXATE
     Indication: Burkitt^s lymphoma
     Route: 037
     Dates: start: 20241227, end: 20250228
  2. METHOTREXATE [Suspect]
     Active Substance: METHOTREXATE
     Dates: start: 20241227, end: 20250228
  3. METHOTREXATE [Suspect]
     Active Substance: METHOTREXATE
     Dates: start: 20241227, end: 20250228
  4. METHOTREXATE [Suspect]
     Active Substance: METHOTREXATE
     Route: 037
     Dates: start: 20241227, end: 20250228
  5. METHOTREXATE [Suspect]
     Active Substance: METHOTREXATE
     Route: 042
     Dates: start: 20250123, end: 20250227
  6. METHOTREXATE [Suspect]
     Active Substance: METHOTREXATE
     Dates: start: 20250123, end: 20250227
  7. METHOTREXATE [Suspect]
     Active Substance: METHOTREXATE
     Dates: start: 20250123, end: 20250227
  8. METHOTREXATE [Suspect]
     Active Substance: METHOTREXATE
     Route: 042
     Dates: start: 20250123, end: 20250227

REACTIONS (2)
  - Toxicity to various agents [Recovered/Resolved]
  - Renal failure [Recovered/Resolved]

NARRATIVE: CASE EVENT DATE: 20250301
